FAERS Safety Report 5618285-2 (Version None)
Quarter: 2008Q1

REPORT INFORMATION
  Report Type: 
  Country: None (occurrence: None)
  Receive Date: 20080204
  Receipt Date: 20080118
  Transmission Date: 20080703
  Serious: No
  Sender: FDA-Public Use
  Company Number: 8029476

PATIENT
  Age: 11 Year
  Sex: Male
  Weight: 34 kg

DRUGS (4)
  1. EQUASYM [Suspect]
     Indication: ATTENTION DEFICIT/HYPERACTIVITY DISORDER
     Dosage: 30 MG 1/D;
     Dates: start: 20061222, end: 20070114
  2. EQUASYM [Suspect]
     Indication: ATTENTION DEFICIT/HYPERACTIVITY DISORDER
     Dosage: 40 MG 1/D;
     Dates: start: 20070115, end: 20070327
  3. EQUASYM [Suspect]
     Indication: ATTENTION DEFICIT/HYPERACTIVITY DISORDER
     Dosage: 50 MG 1/D;
     Dates: start: 20070328
  4. RITALIN [Concomitant]

REACTIONS (5)
  - FATIGUE [None]
  - MALAISE [None]
  - MOROSE [None]
  - SLEEP DISORDER [None]
  - TIC [None]
